FAERS Safety Report 4943892-X (Version None)
Quarter: 2006Q1

REPORT INFORMATION
  Report Type: 
  Country: None (occurrence: None)
  Receive Date: 20060310
  Receipt Date: 20060225
  Transmission Date: 20060701
  Serious: Yes (Hospitalization, Other)
  Sender: FDA-Public Use
  Company Number: 2005166869

PATIENT
  Age: 40 Year
  Sex: Male

DRUGS (7)
  1. LYRICA [Suspect]
     Indication: ILL-DEFINED DISORDER
     Dosage: 150 MG (75 MG, 2 IN 1 D)
  2. NEURONTIN [Suspect]
     Indication: ILL-DEFINED DISORDER
  3. CIPROFLOXACIN [Suspect]
     Indication: URINE ABNORMALITY
     Dates: start: 20050101
  4. OTHER DRUGS FOR DISORD. OF THE MUSCULO-SKELET. SYST (OTHER DRUGS FOR D [Suspect]
     Indication: ILL-DEFINED DISORDER
     Dates: start: 20051101
  5. BACLOFEN [Concomitant]
  6. TAMSULOSIN HYDROCHLORIDE (TAMSULOSIN HYDROCHLORIDE) [Concomitant]
  7. PROTONIX [Concomitant]

REACTIONS (9)
  - DEHYDRATION [None]
  - EOSINOPHIL COUNT INCREASED [None]
  - GALLBLADDER DISORDER [None]
  - HEPATIC FAILURE [None]
  - HYPERHIDROSIS [None]
  - LETHARGY [None]
  - MOTOR DYSFUNCTION [None]
  - SEPSIS [None]
  - URINE ABNORMALITY [None]
